FAERS Safety Report 25094949 (Version 3)
Quarter: 2025Q4

REPORT INFORMATION
  Report Type: Report from Study
  Country: US (occurrence: None)
  Receive Date: 20250319
  Receipt Date: 20251103
  Transmission Date: 20260117
  Serious: Yes (Other)
  Sender: UCB
  Company Number: US-UCBSA-2025015693

PATIENT
  Age: 4 Year
  Weight: 16 kg

DRUGS (2)
  1. FENFLURAMINE HYDROCHLORIDE [Suspect]
     Active Substance: FENFLURAMINE HYDROCHLORIDE
     Indication: Seizure
     Dosage: 6.6 MG/KG
  2. FENFLURAMINE HYDROCHLORIDE [Suspect]
     Active Substance: FENFLURAMINE HYDROCHLORIDE
     Dosage: 0.5 MILLIGRAM/KILOGRAM/DAY (8.8 MILLIGRAM/DAY)

REACTIONS (1)
  - Tricuspid valve incompetence [Recovering/Resolving]
